FAERS Safety Report 18781237 (Version 1)
Quarter: 2021Q1

REPORT INFORMATION
  Report Type: Spontaneous
  Country: US (occurrence: US)
  Receive Date: 20210124
  Receipt Date: 20210124
  Transmission Date: 20210419
  Serious: Yes (Life-Threatening, Hospitalization)
  Sender: FDA-Public Use
  Company Number: None

PATIENT
  Age: 30 Year
  Sex: Female
  Weight: 49.05 kg

DRUGS (6)
  1. MIRENA [Suspect]
     Active Substance: LEVONORGESTREL
     Indication: CONTRACEPTION
     Dosage: ?          OTHER FREQUENCY:CONSTANT;?
     Route: 067
     Dates: start: 20141101, end: 20210119
  2. FAMOTADINE [Concomitant]
  3. ATIVAN [Concomitant]
     Active Substance: LORAZEPAM
  4. ZOFRAN [Concomitant]
     Active Substance: ONDANSETRON HYDROCHLORIDE
  5. BENTYL [Concomitant]
     Active Substance: DICYCLOMINE HYDROCHLORIDE
  6. MULTIVITAMIN [Concomitant]
     Active Substance: VITAMINS

REACTIONS (22)
  - Ovarian cyst ruptured [None]
  - Gastritis [None]
  - Impaired gastric emptying [None]
  - Product prescribing issue [None]
  - Abdominal pain [None]
  - Migraine [None]
  - Headache [None]
  - Weight decreased [None]
  - Anxiety [None]
  - Vomiting [None]
  - Abdominal distension [None]
  - Parosmia [None]
  - Malnutrition [None]
  - Dizziness [None]
  - Nausea [None]
  - Ovarian cyst [None]
  - Bedridden [None]
  - Muscle spasms [None]
  - Feeding disorder [None]
  - Arthralgia [None]
  - Metrorrhagia [None]
  - Mood swings [None]

NARRATIVE: CASE EVENT DATE: 20141101
